FAERS Safety Report 21363647 (Version 1)
Quarter: 2022Q3

REPORT INFORMATION
  Report Type: Spontaneous
  Country: US (occurrence: US)
  Receive Date: 20220922
  Receipt Date: 20220922
  Transmission Date: 20221027
  Serious: No
  Sender: FDA-Public Use
  Company Number: US-PFIZER INC-202201110407

PATIENT
  Age: 15 Year
  Sex: Female

DRUGS (3)
  1. GENOTROPIN [Suspect]
     Active Substance: SOMATROPIN
     Indication: Hormone level abnormal
     Dosage: 1.7 MG, ALTERNATE DAY (ALTERNATES 1.6 AND 1.8 EVERY OTHER DAY TO GET THE PRESCRIBED DOSE OF 1.7.)
     Dates: start: 2012
  2. LEVOTHYROXINE [Concomitant]
     Active Substance: LEVOTHYROXINE
     Indication: Hormone level abnormal
     Dosage: UNK, DAILY
  3. HYDROCORTISONE [Concomitant]
     Active Substance: HYDROCORTISONE
     Indication: Hormone level abnormal
     Dosage: UNK, DAILY

REACTIONS (3)
  - Intentional product misuse [Unknown]
  - Product prescribing error [Unknown]
  - Device power source issue [Unknown]
